FAERS Safety Report 9056465 (Version 1)
Quarter: 2013Q1

REPORT INFORMATION
  Report Type: Spontaneous
  Country: IN (occurrence: IN)
  Receive Date: 20130204
  Receipt Date: 20130204
  Transmission Date: 20140127
  Serious: Yes (Other)
  Sender: FDA-Public Use
  Company Number: IN-ABBOTT-13P-078-1044968-00

PATIENT
  Age: 62 Year
  Sex: Female

DRUGS (2)
  1. LEVOTHYROXINE SODIUM [Suspect]
     Indication: THYROID DISORDER
  2. LIOTHYRONINE [Suspect]
     Indication: THYROID DISORDER

REACTIONS (2)
  - Medication error [Recovered/Resolved]
  - Thyrotoxic crisis [Recovered/Resolved]
